FAERS Safety Report 6247394-2 (Version None)
Quarter: 2009Q2

REPORT INFORMATION
  Report Type: 
  Country: None (occurrence: None)
  Receive Date: 20090626
  Receipt Date: 20090619
  Transmission Date: 20091009
  Serious: Yes (Death, Hospitalization)
  Sender: FDA-Public Use
  Company Number: D0061191A

PATIENT
  Sex: Female

DRUGS (3)
  1. ARIXTRA [Suspect]
     Indication: HEPARIN-INDUCED THROMBOCYTOPENIA
     Route: 058
     Dates: start: 20090403, end: 20090405
  2. NEXIUM [Concomitant]
     Route: 065
     Dates: start: 20090405, end: 20090411
  3. ACTRAPID [Concomitant]
     Route: 065
     Dates: start: 20090405, end: 20090411

REACTIONS (8)
  - BLOOD GLUCOSE INCREASED [None]
  - ENDOCARDITIS [None]
  - GASTROINTESTINAL HAEMORRHAGE [None]
  - HAEMORRHAGE [None]
  - INJECTION SITE HAEMORRHAGE [None]
  - MUCOSAL HAEMORRHAGE [None]
  - RENAL FAILURE [None]
  - SKIN HAEMORRHAGE [None]
